FAERS Safety Report 20950813 (Version 1)
Quarter: 2022Q2

REPORT INFORMATION
  Report Type: Spontaneous
  Country: US (occurrence: None)
  Receive Date: 20220610
  Receipt Date: 20220610
  Transmission Date: 20220721
  Serious: Yes (Other)
  Sender: FDA-Public Use
  Company Number: None

PATIENT
  Age: 66 Year
  Sex: Male
  Weight: 80.55 kg

DRUGS (4)
  1. LOSARTAN [Suspect]
     Active Substance: LOSARTAN
     Indication: Hypertension
     Dosage: OTHER QUANTITY : 90 TABLET(S);?FREQUENCY : DAILY;?
     Route: 048
     Dates: start: 20220530
  2. LOSARTAN [Concomitant]
     Active Substance: LOSARTAN
  3. Atenolol,Rosuvastatin [Concomitant]
  4. Turmeric extract [Concomitant]

REACTIONS (2)
  - Blood pressure inadequately controlled [None]
  - Dizziness [None]

NARRATIVE: CASE EVENT DATE: 20220609
